FAERS Safety Report 4384965-2 (Version None)
Quarter: 2004Q2

REPORT INFORMATION
  Report Type: 
  Country: None (occurrence: None)
  Receive Date: 20040625
  Receipt Date: 20040615
  Transmission Date: 20050107
  Serious: Yes (Hospitalization)
  Sender: FDA-Public Use
  Company Number: PHNR2004AU01088

PATIENT
  Age: 86 Year
  Sex: Female

DRUGS (9)
  1. TEGRETOL [Suspect]
     Indication: NEURALGIA
     Dosage: 400 MG/DAY
     Route: 048
     Dates: start: 20040103
  2. OXYCONTIN [Suspect]
     Indication: NEURALGIA
     Dosage: 20 MG/DAY
     Route: 048
     Dates: start: 20040103
  3. IRBESARTAN [Concomitant]
  4. GLICLAZIDE [Concomitant]
  5. WARFARIN SODIUM [Concomitant]
  6. DIGOXIN [Concomitant]
  7. FUROSEMIDE [Concomitant]
  8. DILTIAZEM [Concomitant]
  9. ACETAMINOPHEN [Concomitant]

REACTIONS (2)
  - CONFUSIONAL STATE [None]
  - STUPOR [None]
